FAERS Safety Report 7273225-8 (Version None)
Quarter: 2011Q1

REPORT INFORMATION
  Report Type: 
  Country: None (occurrence: None)
  Receive Date: 20110203
  Receipt Date: 20110125
  Transmission Date: 20110831
  Serious: Yes (Hospitalization)
  Sender: FDA-Public Use
  Company Number: IT-ELI_LILLY_AND_COMPANY-IT201101005903

PATIENT
  Sex: Female

DRUGS (9)
  1. GARDENALE [Concomitant]
     Indication: EPILEPSY
     Dosage: 1 D/F, DAILY (1/D)
     Dates: start: 20100819, end: 20100831
  2. ASPIRIN [Concomitant]
  3. SIVASTIN [Concomitant]
  4. FLUDROCORTISONE [Concomitant]
  5. XALATAN [Concomitant]
  6. ZYPREXA [Suspect]
     Indication: DELIRIUM
     Dosage: 52.5 MG, OTHER
     Route: 048
     Dates: start: 20100101, end: 20100908
  7. AXAGON [Concomitant]
  8. CALCIUM CARBONATE/VITAMIN D3 [Concomitant]
  9. MOVICOL [Concomitant]

REACTIONS (3)
  - BRADYKINESIA [None]
  - OFF LABEL USE [None]
  - BRADYPHRENIA [None]
